FAERS Safety Report 4652723-7 (Version None)
Quarter: 2005Q2

REPORT INFORMATION
  Report Type: 
  Country: None (occurrence: None)
  Receive Date: 20050502
  Receipt Date: 20050418
  Transmission Date: 20051028
  Serious: Yes (Hospitalization)
  Sender: FDA-Public Use
  Company Number: 2005061749

PATIENT
  Age: 68 Year
  Sex: Male

DRUGS (6)
  1. SOLU-MEDROL [Suspect]
     Indication: ILL-DEFINED DISORDER
     Dates: start: 20041129
  2. FLUCONAZOLE [Suspect]
     Indication: ILL-DEFINED DISORDER
     Dates: start: 20041218
  3. ZYVOX [Suspect]
     Indication: ILL-DEFINED DISORDER
     Dosage: 1200 MG (1 IN 1 D)
     Dates: start: 20041217, end: 20050103
  4. CIPROFLOXACIN [Suspect]
     Indication: ILL-DEFINED DISORDER
     Dosage: 800 MG (1D), INTRAVENOUS
     Route: 042
     Dates: start: 20041217, end: 20041226
  5. TIENAM (CILASTATIN, IMIPENEM) [Suspect]
     Indication: ILL-DEFINED DISORDER
     Dosage: 3 DOSE FORMS (500 MG, 1 IN 1 D), INTRAVENOUS
     Route: 042
     Dates: start: 20041217
  6. TACROLIMUS (TACROLIMUS) [Suspect]
     Indication: ILL-DEFINED DISORDER
     Dosage: ORAL
     Route: 048
     Dates: start: 20041129, end: 20041228

REACTIONS (3)
  - RED BLOOD CELL COUNT DECREASED [None]
  - THROMBOTIC THROMBOCYTOPENIC PURPURA [None]
  - WHITE BLOOD CELL COUNT DECREASED [None]
